FAERS Safety Report 11192927 (Version 2)
Quarter: 2015Q2

REPORT INFORMATION
  Report Type: Report from Study
  Country: US (occurrence: US)
  Receive Date: 20150616
  Receipt Date: 20150618
  Transmission Date: 20150821
  Serious: Yes (Hospitalization)
  Sender: FDA-Public Use
  Company Number: US-GILEAD-2015-0158590

PATIENT
  Age: 33 Year
  Sex: Female

DRUGS (5)
  1. REMODULIN [Suspect]
     Active Substance: TREPROSTINIL
     Indication: PRODUCT USED FOR UNKNOWN INDICATION
     Dosage: 31 NG/KG/MIN
     Route: 042
     Dates: start: 20150610
  2. AMBRISENTAN [Suspect]
     Active Substance: AMBRISENTAN
     Indication: PULMONARY ARTERIAL HYPERTENSION
     Dosage: 5 MG, QD
     Route: 065
     Dates: start: 200912
  3. ORENITRAM [Suspect]
     Active Substance: TREPROSTINIL
     Indication: PRODUCT USED FOR UNKNOWN INDICATION
     Dosage: 3 MG, TID
     Route: 065
     Dates: start: 20150610
  4. REMODULIN [Suspect]
     Active Substance: TREPROSTINIL
     Dosage: UNK
     Route: 065
  5. ORENITRAM [Suspect]
     Active Substance: TREPROSTINIL
     Dosage: UNK
     Route: 065

REACTIONS (5)
  - Headache [Unknown]
  - Nausea [Unknown]
  - Fatigue [Unknown]
  - Wheezing [Unknown]
  - Dysphonia [Unknown]

NARRATIVE: CASE EVENT DATE: 20150610
